FAERS Safety Report 21689030 (Version 2)
Quarter: 2023Q1

REPORT INFORMATION
  Report Type: Spontaneous
  Country: CA (occurrence: CA)
  Receive Date: 20221206
  Receipt Date: 20230321
  Transmission Date: 20230417
  Serious: Yes (Other)
  Sender: FDA-Public Use
  Company Number: CA-PFIZER INC-202201074525

PATIENT
  Age: 74 Year
  Sex: Female
  Weight: 71 kg

DRUGS (2)
  1. RUXIENCE [Suspect]
     Active Substance: RITUXIMAB-PVVR
     Indication: Dermatomyositis
     Dosage: 1000 MG, DAY 1 AND DAY 15 EVERY 6 MONTHS
     Route: 042
     Dates: start: 20221114, end: 2022
  2. RUXIENCE [Suspect]
     Active Substance: RITUXIMAB-PVVR
     Indication: Pneumonia

REACTIONS (4)
  - Gastrointestinal disorder [Not Recovered/Not Resolved]
  - Haemorrhage [Recovered/Resolved]
  - COVID-19 [Recovered/Resolved]
  - Off label use [Unknown]
